FAERS Safety Report 4301687-4 (Version None)
Quarter: 2004Q1

REPORT INFORMATION
  Report Type: 
  Country: None (occurrence: None)
  Receive Date: 20040217
  Receipt Date: 20040206
  Transmission Date: 20041129
  Serious: Yes (Other)
  Sender: FDA-Public Use
  Company Number: 200410072BCA

PATIENT
  Sex: Female

DRUGS (2)
  1. PLASBUMIN-25 [Suspect]
     Dosage: 500 ML, TOTAL DAILY, INTRAVENOUS
     Route: 042
     Dates: start: 19940228
  2. PLASBUMIN-25 [Suspect]
     Dosage: 100 ML, TOTAL DAILY, INTRAVENOUS
     Route: 042
     Dates: start: 19940228

REACTIONS (1)
  - HEPATITIS C VIRUS [None]
